FAERS Safety Report 9517397 (Version 2)
Quarter: 2014Q1

REPORT INFORMATION
  Report Type: Spontaneous
  Country: US (occurrence: None)
  Receive Date: 20130305
  Receipt Date: 20140306
  Transmission Date: 20141002
  Serious: Yes (Other)
  Sender: FDA-Public Use
  Company Number: 163-21880-12042334

PATIENT
  Age: 87 Year
  Sex: Female
  Weight: 46.09 kg

DRUGS (2)
  1. REVLIMID [Suspect]
     Indication: PLASMA CELL MYELOMA
     Dosage: 10 MG,  21 IN 28 D, PO
     Route: 048
     Dates: start: 20100422
  2. METFORMIN (METFORMIN) [Concomitant]

REACTIONS (3)
  - Diarrhoea [None]
  - Constipation [None]
  - Drug dose omission [None]
